FAERS Safety Report 5935495-5 (Version None)
Quarter: 2008Q4

REPORT INFORMATION
  Report Type: 
  Country: None (occurrence: None)
  Receive Date: 20081030
  Receipt Date: 20081002
  Transmission Date: 20090506
  Serious: No
  Sender: FDA-Public Use
  Company Number: US-BAYER-200810727BCC

PATIENT
  Age: 69 Year
  Sex: Female
  Weight: 99 kg

DRUGS (3)
  1. ALEVE (CAPLET) [Suspect]
     Indication: ARTHRALGIA
     Dosage: TOTAL DAILY DOSE: 440 MG  UNIT DOSE: 220 MG
     Route: 048
     Dates: start: 20070501
  2. GLUCOSAMINE [Concomitant]
  3. CHONDROITIN [Concomitant]

REACTIONS (2)
  - MIDDLE INSOMNIA [None]
  - PAIN IN EXTREMITY [None]
